FAERS Safety Report 10582595 (Version 1)
Quarter: 2014Q4

REPORT INFORMATION
  Report Type: Spontaneous
  Country: DE (occurrence: DE)
  Receive Date: 20141113
  Receipt Date: 20141113
  Transmission Date: 20150529
  Serious: Yes (Congenital Anomaly)
  Sender: FDA-Public Use
  Company Number: DE-ABBVIE-14P-062-1306663-00

PATIENT
  Sex: Female
  Weight: 2.22 kg

DRUGS (3)
  1. HUMIRA [Suspect]
     Active Substance: ADALIMUMAB
     Indication: MATERNAL EXPOSURE TIMING UNSPECIFIED
     Route: 064
  2. FOLIC FORTE (FOLIC ACID/IODINE/VIT.B12) [Suspect]
     Active Substance: FOLIC ACID\VITAMINS
     Indication: MATERNAL EXPOSURE TIMING UNSPECIFIED
     Route: 064
  3. PREDNISOLONE. [Suspect]
     Active Substance: PREDNISOLONE
     Indication: MATERNAL EXPOSURE TIMING UNSPECIFIED
     Route: 064

REACTIONS (7)
  - Cleft palate [Not Recovered/Not Resolved]
  - Pectus excavatum [Not Recovered/Not Resolved]
  - Foetal exposure during pregnancy [Unknown]
  - Maternal drugs affecting foetus [None]
  - Retrognathia [Not Recovered/Not Resolved]
  - Premature baby [Unknown]
  - Pierre Robin syndrome [Not Recovered/Not Resolved]

NARRATIVE: CASE EVENT DATE: 20131118
